FAERS Safety Report 17111611 (Version 3)
Quarter: 2020Q1

REPORT INFORMATION
  Report Type: Spontaneous
  Country: CA (occurrence: CA)
  Receive Date: 20191204
  Receipt Date: 20200219
  Transmission Date: 20200409
  Serious: Yes (Death)
  Sender: FDA-Public Use
  Company Number: CA-PFIZER INC-2019524221

PATIENT
  Age: 58 Year
  Sex: Female

DRUGS (9)
  1. HYDROMORPHONE [Concomitant]
     Active Substance: HYDROMORPHONE
     Indication: PAIN
     Dosage: 1 MG, Q 6 H AS NEEDED
     Route: 048
  2. HYDROCODONE [Concomitant]
     Active Substance: HYDROCODONE
     Dosage: 5 MG, AS NEEDED (5 MG Q (EVERY) 4H PRN (AS NEEDED))
     Route: 048
     Dates: start: 20161207
  3. SPIRONOLACTONA [Concomitant]
     Active Substance: SPIRONOLACTONE
     Dosage: 50 MG, DAILY
     Route: 048
     Dates: start: 20161207
  4. INLYTA [Suspect]
     Active Substance: AXITINIB
     Indication: METASTATIC RENAL CELL CARCINOMA
     Dosage: 5 MG, DAILY
     Dates: start: 20161215
  5. DOCUSATE [Concomitant]
     Active Substance: DOCUSATE
     Indication: CONSTIPATION
     Dosage: 2 DF, 2X/DAY (2 CAPS BID)
  6. FUROSEMIDE [FUROSEMIDE SODIUM] [Concomitant]
     Indication: OEDEMA
     Dosage: 2 MG, 2X/DAY
     Route: 048
     Dates: start: 20161110
  7. SENOLAX [Concomitant]
     Indication: CONSTIPATION
     Dosage: 1-2 TABLETS, 2X/DAY AS NEEDED
     Route: 048
     Dates: start: 20161028
  8. INLYTA [Suspect]
     Active Substance: AXITINIB
     Dosage: 7 MG, 2X/DAY
     Route: 048
     Dates: start: 20161207, end: 20170118
  9. LORAZEPAM. [Concomitant]
     Active Substance: LORAZEPAM
     Indication: INSOMNIA
     Dosage: 1 MG, Q HS(BED TIME)
     Route: 048

REACTIONS (2)
  - Neoplasm progression [Fatal]
  - Acute hepatic failure [Fatal]

NARRATIVE: CASE EVENT DATE: 201701
